FAERS Safety Report 6959495-1 (Version None)
Quarter: 2010Q3

REPORT INFORMATION
  Report Type: 
  Country: None (occurrence: None)
  Receive Date: 20100827
  Receipt Date: 20100816
  Transmission Date: 20110219
  Serious: Yes (Hospitalization)
  Sender: FDA-Public Use
  Company Number: 2010PL000136

PATIENT
  Sex: Male

DRUGS (2)
  1. MERCAPTOPURINE [Suspect]
     Indication: ABDOMINAL DISCOMFORT
  2. CIMZIA [Suspect]
     Indication: CROHN'S DISEASE
     Dosage: SC
     Route: 058
     Dates: start: 20090815

REACTIONS (7)
  - ABDOMINAL DISCOMFORT [None]
  - ABDOMINAL DISTENSION [None]
  - ABDOMINAL PAIN [None]
  - DRUG HYPERSENSITIVITY [None]
  - FAECES HARD [None]
  - NO THERAPEUTIC RESPONSE [None]
  - PANCREATITIS [None]
